FAERS Safety Report 7497380-X (Version None)
Quarter: 2011Q2

REPORT INFORMATION
  Report Type: 
  Country: None (occurrence: None)
  Receive Date: 20110523
  Receipt Date: 20101123
  Transmission Date: 20111010
  Serious: No
  Sender: FDA-Public Use
  Company Number: US-NOVEN-ALL1-2010-05638

PATIENT
  Sex: Male
  Weight: 35.828 kg

DRUGS (4)
  1. DAYTRANA [Suspect]
     Dosage: UNK MG, 1X/DAY:QD CUTS THE 30 MG PATCH DOWN TO 83 MM
     Route: 062
  2. CONCERTA [Concomitant]
     Dosage: UNK MG, 1X/DAY:QD
     Route: 048
  3. HUMATROPE [Concomitant]
     Dosage: 6 ML, 1X/DAY:QD
     Route: 058
  4. DAYTRANA [Suspect]
     Dosage: 30 MG, 1X/DAY:QD
     Route: 062
     Dates: start: 20080101

REACTIONS (4)
  - ANXIETY [None]
  - IMPULSIVE BEHAVIOUR [None]
  - DRUG EFFECT DELAYED [None]
  - WRONG TECHNIQUE IN DRUG USAGE PROCESS [None]
